FAERS Safety Report 9209826 (Version 1)
Quarter: 2013Q1

REPORT INFORMATION
  Report Type: Spontaneous
  Country: US (occurrence: None)
  Receive Date: 20120820
  Receipt Date: 20120820
  Transmission Date: 20140127
  Serious: No
  Sender: FDA-Public Use
  Company Number: 1000030959

PATIENT
  Age: 62 Year
  Sex: 0

DRUGS (10)
  1. VIIBRYD [Suspect]
     Indication: DEPRESSION
     Route: 048
     Dates: start: 201205, end: 20120615
  2. NIASPAN (NICOTINIC ACID) (NICOTINIC ACID) [Concomitant]
  3. ZETIA (EZETIMIBE) (EZETIMIBE) [Concomitant]
  4. FOLIC ACID (FOLIC ACID ) (FOLIC ACID) [Concomitant]
  5. BABY ASPIRIN (ACETYLSALICYLIC ACID) (ACETYLSALICYLIC ACID) [Concomitant]
  6. ADVIL (IBUPROFEN) (IBOPROFEN) [Concomitant]
  7. COLACE (DOCUSATE SODIUM) (DOCUSATE SODIUM) [Concomitant]
  8. MVI (MVI) (MVI) [Concomitant]
  9. PRILOSEC (OMERPRAZOLE) (OMERPRAZOLE) [Concomitant]
  10. LOVAZA (OMEGA-3 MARINE TRIGLYCERIDES) (OMEGA-3 MARINE TRIGLYCERIDES) [Concomitant]

REACTIONS (7)
  - Weight increased [None]
  - Joint stiffness [None]
  - Musculoskeletal stiffness [None]
  - Somnolence [None]
  - Headache [None]
  - Increased appetite [None]
  - Diarrhoea [None]
